FAERS Safety Report 20742181 (Version 4)
Quarter: 2022Q2

REPORT INFORMATION
  Report Type: Spontaneous
  Country: US (occurrence: US)
  Receive Date: 20220423
  Receipt Date: 20220626
  Transmission Date: 20220721
  Serious: Yes (Hospitalization, Other)
  Sender: FDA-Public Use
  Company Number: US-UNITED THERAPEUTICS-UNT-2022-007210

PATIENT
  Age: 75 Year
  Sex: Male
  Weight: 73.469 kg

DRUGS (5)
  1. REMODULIN [Suspect]
     Active Substance: TREPROSTINIL
     Indication: Pulmonary arterial hypertension
     Dosage: UNK, CONTINUING
     Route: 041
     Dates: start: 20181213
  2. REMODULIN [Suspect]
     Active Substance: TREPROSTINIL
     Dosage: 0.060 ?G/KG, CONTINUING
     Route: 041
  3. REMODULIN [Suspect]
     Active Substance: TREPROSTINIL
     Dosage: 0.044 ?G/KG, CONTINUING
     Route: 041
  4. ADCIRCA [Concomitant]
     Active Substance: TADALAFIL
     Indication: Pulmonary arterial hypertension
     Dosage: UNK
     Route: 065
  5. ELIQUIS [Concomitant]
     Active Substance: APIXABAN
     Indication: Product used for unknown indication
     Dosage: UNK
     Route: 065

REACTIONS (6)
  - Syncope [Recovered/Resolved]
  - Dizziness [Unknown]
  - Fatigue [Not Recovered/Not Resolved]
  - Dyspnoea [Not Recovered/Not Resolved]
  - Enterobacter sepsis [Recovered/Resolved]
  - COVID-19 [Unknown]

NARRATIVE: CASE EVENT DATE: 20220326
